FAERS Safety Report 8823971 (Version 1)
Quarter: 2012Q4

REPORT INFORMATION
  Report Type: 
  Country: US (occurrence: US)
  Receive Date: 20121003
  Receipt Date: 20121003
  Transmission Date: 20130627
  Serious: Yes (Other)
  Sender: FDA-Public Use
  Company Number: US-MERCK-1210USA000895

PATIENT
  Sex: Male

DRUGS (1)
  1. JANUVIA [Suspect]
     Dosage: 100 mg, qd
     Route: 048

REACTIONS (9)
  - Headache [Unknown]
  - Hunger [Unknown]
  - Asthenia [Unknown]
  - Night sweats [Unknown]
  - Somnolence [Unknown]
  - Dizziness [Unknown]
  - Feeling jittery [Unknown]
  - Heart rate increased [Unknown]
  - Confusional state [Unknown]
